FAERS Safety Report 9105997 (Version 1)
Quarter: 2013Q1

REPORT INFORMATION
  Report Type: Report from Study
  Country: JP (occurrence: JP)
  Receive Date: 20130221
  Receipt Date: 20130221
  Transmission Date: 20140127
  Serious: Yes (Death)
  Sender: FDA-Public Use
  Company Number: JP-AMGEN-JPNCT2013011872

PATIENT
  Age: 87 Year
  Sex: Male
  Weight: 53 kg

DRUGS (16)
  1. DARBEPOETIN ALFA [Suspect]
     Indication: NEPHROGENIC ANAEMIA
     Dosage: 30 MUG, UNK
     Route: 058
     Dates: start: 20110812, end: 20110812
  2. DARBEPOETIN ALFA [Suspect]
     Dosage: 40 MUG, Q4WK
     Dates: start: 20110909, end: 20111202
  3. DARBEPOETIN ALFA [Suspect]
     Dosage: 40 MUG, Q3WK
     Dates: start: 20120106, end: 20120127
  4. LIPITOR [Concomitant]
     Dosage: UNK
     Route: 048
  5. DEPAS [Concomitant]
     Dosage: UNK
     Route: 048
  6. MUCOSTA [Concomitant]
     Dosage: UNK
     Route: 048
  7. BAYASPIRIN [Concomitant]
     Dosage: UNK
     Route: 048
  8. HARNAL [Concomitant]
     Dosage: UNK
     Route: 048
  9. ZYLORIC [Concomitant]
     Dosage: UNK
     Route: 048
  10. LASIX [Concomitant]
     Dosage: UNK
     Route: 048
  11. SELIS [Concomitant]
     Dosage: UNK
     Route: 048
  12. CRAVIT [Concomitant]
     Dosage: UNK
     Route: 048
  13. FLIVAS [Concomitant]
     Dosage: UNK
     Route: 048
  14. FLUITRAN [Concomitant]
     Dosage: UNK
     Route: 048
  15. FLOMOX [Concomitant]
     Dosage: UNK
     Route: 048
  16. ACARDI [Concomitant]
     Dosage: UNK
     Route: 048

REACTIONS (1)
  - Death [Fatal]
